FAERS Safety Report 17582045 (Version 1)
Quarter: 2020Q1

REPORT INFORMATION
  Report Type: Spontaneous
  Country: US (occurrence: US)
  Receive Date: 20200325
  Receipt Date: 20200325
  Transmission Date: 20200409
  Serious: Yes (Hospitalization, Other)
  Sender: FDA-Public Use
  Company Number: US-ROCHE-2570120

PATIENT
  Sex: Female
  Weight: 68.1 kg

DRUGS (26)
  1. SPIRONOLACTONE. [Concomitant]
     Active Substance: SPIRONOLACTONE
     Indication: OEDEMA PERIPHERAL
     Dosage: STARTED ABOUT 15 YEARS AGO
     Route: 048
  2. PROAIR HFA [Concomitant]
     Active Substance: ALBUTEROL SULFATE
     Indication: SEASONAL ALLERGY
     Dosage: 2 INHALATIONS IN 4 HOURS AS NEEDED
     Route: 055
  3. ASPIRIN [ACETYLSALICYLIC ACID] [Concomitant]
     Active Substance: ASPIRIN
     Dosage: AS A PRECAUTION IF SHE HAS A HEART PROBLEM
     Route: 048
  4. ROSUVASTATIN. [Concomitant]
     Active Substance: ROSUVASTATIN
     Indication: BLOOD CHOLESTEROL INCREASED
     Dosage: STARTED ABOUT 15 YEARS AGO
     Route: 048
  5. PREDNISONE. [Concomitant]
     Active Substance: PREDNISONE
     Indication: HYPERSENSITIVITY
     Dosage: ORDERED FOR 8 DAYS AND 2 MORE DAYS TO GO
     Route: 048
     Dates: start: 20200310
  6. CELEBREX [Concomitant]
     Active Substance: CELECOXIB
     Indication: ARTHRALGIA
     Dosage: REFILLED IN JAN-2020
     Route: 048
  7. FLUTICASONE. [Concomitant]
     Active Substance: FLUTICASONE
     Dosage: 2 SPRAY PER NARES ONCE A DAY STARTED 15 YEARS AGO
     Route: 045
  8. BABY ASPIRIN [Concomitant]
     Active Substance: ASPIRIN
     Route: 048
  9. ACETAMINOPHEN. [Concomitant]
     Active Substance: ACETAMINOPHEN
     Indication: PAIN
     Dosage: STARTED ABOUT 10 YEARS AGO
     Route: 048
  10. ESOMEPRAZOLE MAGNESIUM. [Concomitant]
     Active Substance: ESOMEPRAZOLE MAGNESIUM
     Indication: GASTROOESOPHAGEAL REFLUX DISEASE
     Route: 048
     Dates: start: 2000
  11. TRIPLE MAGNESIUM COMPLEX [Concomitant]
     Indication: ARTHRITIS
     Route: 048
  12. CVS SALINE NASAL SPRAY [Concomitant]
     Active Substance: SODIUM CHLORIDE
     Indication: SEASONAL ALLERGY
     Dosage: USES OFF AND ON
     Route: 045
  13. LISINOPRIL. [Concomitant]
     Active Substance: LISINOPRIL
     Indication: HYPERTENSION
     Dosage: STARTED ABOUT 20 YEARS AGO
     Route: 048
  14. BELSOMRA [Concomitant]
     Active Substance: SUVOREXANT
     Indication: INSOMNIA
     Dosage: AT NIGHT STARTED A LONG TIME AGO ;
     Route: 048
  15. ASCORBIC ACID;COPPER;VITAMIN E NOS;XANTOFYL;ZEAXANTHIN;ZINC [Concomitant]
     Indication: MACULAR DEGENERATION
     Dosage: 4 PILLS ONCE A DAY
     Route: 048
  16. DILTIAZEM CD [Concomitant]
     Active Substance: DILTIAZEM
     Indication: HYPERTENSION
     Dosage: STARTED ABOUT 10 TO 15 YEARS AGO
     Route: 048
  17. METOPROLOL SUCCINATE. [Concomitant]
     Active Substance: METOPROLOL SUCCINATE
     Dosage: STARTED 10 TO 15 YEARS AGO
     Route: 048
  18. VITAMIN D3 [Concomitant]
     Active Substance: CHOLECALCIFEROL
     Route: 048
  19. AVASTIN [Suspect]
     Active Substance: BEVACIZUMAB
     Indication: NEOVASCULAR AGE-RELATED MACULAR DEGENERATION
     Dosage: STOPPED AROUND SUMMER 2019 LEFT EYE ;ONGOING: NO
     Route: 050
     Dates: start: 201712, end: 2019
  20. METOPROLOL SUCCINATE. [Concomitant]
     Active Substance: METOPROLOL SUCCINATE
     Indication: HYPERTENSION
     Dosage: DECREASE 2 TO 3 YEARS AGO
     Route: 048
  21. AFRIN [OXYMETAZOLINE HYDROCHLORIDE] [Concomitant]
     Indication: SEASONAL ALLERGY
     Dosage: 2 SPRAYS EACH NARES 2 TIMES PER DAY ONLY 3 DAYS
     Route: 045
     Dates: start: 202003, end: 202003
  22. CONTACT LAXATIVES [Concomitant]
     Active Substance: UNSPECIFIED INGREDIENT
     Indication: CONSTIPATION
     Route: 048
  23. LUCENTIS [Suspect]
     Active Substance: RANIBIZUMAB
     Indication: NEOVASCULAR AGE-RELATED MACULAR DEGENERATION
     Dosage: LEFT EYE ;ONGOING:YES
     Route: 050
     Dates: start: 20190701
  24. OLOPATADINE HCL [Concomitant]
     Active Substance: OLOPATADINE HYDROCHLORIDE
     Indication: SEASONAL ALLERGY
     Dosage: 2 SPRAY IN EACH NARES STARTED 15 YEARS AGO
     Route: 045
  25. FLUTICASONE. [Concomitant]
     Active Substance: FLUTICASONE
     Indication: SEASONAL ALLERGY
     Dosage: 1 SPRAY PER NARES ONCE A DAY STARTED 15 YEARS AGO
     Route: 045
  26. EPIPEN [Concomitant]
     Active Substance: EPINEPHRINE
     Indication: ANAPHYLACTIC REACTION
     Dosage: NEVER USED IT
     Route: 065

REACTIONS (4)
  - Atrial fibrillation [Recovered/Resolved]
  - Intraocular pressure increased [Recovered/Resolved]
  - Eye haemorrhage [Not Recovered/Not Resolved]
  - Seasonal allergy [Recovering/Resolving]

NARRATIVE: CASE EVENT DATE: 2018
